FAERS Safety Report 8609728-0 (Version None)
Quarter: 2012Q3

REPORT INFORMATION
  Report Type: 
  Country: None (occurrence: None)
  Receive Date: 20120821
  Receipt Date: 20120816
  Transmission Date: 20120928
  Serious: Yes (Hospitalization)
  Sender: FDA-Public Use
  Company Number: US-GILEAD-2012-0058844

PATIENT
  Sex: Female

DRUGS (10)
  1. SILDENAFIL [Concomitant]
     Indication: PULMONARY HYPERTENSION
  2. COUMADIN [Concomitant]
     Indication: PULMONARY HYPERTENSION
  3. LASIX [Concomitant]
     Indication: PULMONARY HYPERTENSION
  4. METOLAZONE [Concomitant]
     Indication: PULMONARY HYPERTENSION
  5. EPOPROSTENOL SODIUM [Concomitant]
     Indication: PULMONARY HYPERTENSION
  6. LETAIRIS [Suspect]
     Indication: PULMONARY HYPERTENSION
     Dosage: 5 MG, UNK
     Route: 048
     Dates: start: 20120531
  7. METOPROLOL TARTRATE [Concomitant]
     Indication: HYPERTENSION
  8. POTASSIUM CHLORIDE [Concomitant]
     Indication: PULMONARY HYPERTENSION
  9. AMBIEN [Concomitant]
  10. FLEXERIL [Concomitant]

REACTIONS (4)
  - RENAL FAILURE ACUTE [None]
  - HYPOKALAEMIA [None]
  - ASTHENIA [None]
  - RIGHT VENTRICULAR FAILURE [None]
